FAERS Safety Report 7977945-9 (Version None)
Quarter: 2011Q4

REPORT INFORMATION
  Report Type: 
  Country: None (occurrence: None)
  Receive Date: 20111214
  Receipt Date: 20111209
  Transmission Date: 20120403
  Serious: No
  Sender: FDA-Public Use
  Company Number: US-BIOGENIDEC-2010BI022133

PATIENT
  Age: 55 Year
  Sex: Female

DRUGS (1)
  1. TYSABRI [Suspect]
     Indication: MULTIPLE SCLEROSIS
     Route: 042
     Dates: start: 20100323

REACTIONS (19)
  - MENISCUS LESION [None]
  - ASTHMA [None]
  - PULMONARY CONGESTION [None]
  - PAIN IN EXTREMITY [None]
  - ASTHENIA [None]
  - OEDEMA PERIPHERAL [None]
  - MUSCULOSKELETAL STIFFNESS [None]
  - OSTEOARTHRITIS [None]
  - HEADACHE [None]
  - DIZZINESS [None]
  - ARTHRALGIA [None]
  - JOINT SWELLING [None]
  - MULTIPLE SCLEROSIS RELAPSE [None]
  - DYSPNOEA [None]
  - UHTHOFF'S PHENOMENON [None]
  - ANTINUCLEAR ANTIBODY POSITIVE [None]
  - HOT FLUSH [None]
  - MULTIPLE SCLEROSIS [None]
  - FATIGUE [None]
